FAERS Safety Report 7771002-2 (Version None)
Quarter: 2011Q3

REPORT INFORMATION
  Report Type: 
  Country: None (occurrence: None)
  Receive Date: 20110922
  Receipt Date: 20100824
  Transmission Date: 20111222
  Serious: No
  Sender: FDA-Public Use
  Company Number: US-ASTRAZENECA-2010SE39846

PATIENT
  Age: 28 Year
  Sex: Male
  Weight: 91.2 kg

DRUGS (3)
  1. SEROQUEL XR [Suspect]
     Indication: FEELING OF RELAXATION
     Route: 048
  2. SEROQUEL XR [Suspect]
     Route: 048
     Dates: start: 20100816
  3. ALLEGRA [Concomitant]

REACTIONS (5)
  - CONFUSIONAL STATE [None]
  - SOMNOLENCE [None]
  - IMPAIRED WORK ABILITY [None]
  - BURNOUT SYNDROME [None]
  - DRUG INEFFECTIVE [None]
